FAERS Safety Report 18460508 (Version 1)
Quarter: 2020Q4

REPORT INFORMATION
  Report Type: Other
  Country: US (occurrence: US)
  Receive Date: 20201103
  Receipt Date: 20201103
  Transmission Date: 20210114
  Serious: Yes (Other)
  Sender: FDA-Public Use
  Company Number: US-ROCHE-2706229

PATIENT
  Age: 53 Year
  Sex: Female

DRUGS (1)
  1. ALECENSA [Suspect]
     Active Substance: ALECTINIB HYDROCHLORIDE
     Indication: NON-SMALL CELL LUNG CANCER
     Dosage: ONGOING: YES
     Route: 048

REACTIONS (5)
  - Pleural effusion [Recovered/Resolved]
  - Fatigue [Recovered/Resolved]
  - Muscular weakness [Recovered/Resolved]
  - Dyspnoea [Recovered/Resolved]
  - Constipation [Recovered/Resolved]

NARRATIVE: CASE EVENT DATE: 202007
